FAERS Safety Report 5023221-6 (Version None)
Quarter: 2006Q2

REPORT INFORMATION
  Report Type: 
  Country: None (occurrence: None)
  Receive Date: 20060606
  Receipt Date: 20060523
  Transmission Date: 20061013
  Serious: Yes (Other)
  Sender: FDA-Public Use
  Company Number: 000464

PATIENT
  Age: 70 Year
  Sex: Female

DRUGS (1)
  1. DAIVONEX                        (CALCIPOTRIOL) [Suspect]
     Indication: PSORIASIS
     Dosage: 2.00 DF (50 MCG/KG, DAILY) TO
     Route: 061
     Dates: start: 19921010, end: 19921013

REACTIONS (6)
  - DISEASE RECURRENCE [None]
  - DRUG INEFFECTIVE [None]
  - ERYTHEMA [None]
  - LEUKOCYTOCLASTIC VASCULITIS [None]
  - PSORIASIS [None]
  - RASH ERYTHEMATOUS [None]
